FAERS Safety Report 5929771-X (Version None)
Quarter: 2008Q4

REPORT INFORMATION
  Report Type: 
  Country: None (occurrence: None)
  Receive Date: 20081024
  Receipt Date: 20081016
  Transmission Date: 20090506
  Serious: Yes (Hospitalization)
  Sender: FDA-Public Use
  Company Number: FR-PFIZER INC-2008088055

PATIENT
  Sex: Female

DRUGS (16)
  1. TAHOR [Suspect]
     Route: 048
     Dates: end: 20080926
  2. PYOSTACINE [Suspect]
     Indication: WOUND
     Route: 048
     Dates: start: 20080916, end: 20080922
  3. PREVISCAN [Suspect]
     Route: 048
     Dates: end: 20080926
  4. ACARBOSE [Concomitant]
  5. IMOVANE [Concomitant]
  6. CARDENSIEL [Concomitant]
  7. LEVOTHYROX [Concomitant]
  8. LANTUS [Concomitant]
  9. PLAVIX [Concomitant]
     Dates: end: 20080926
  10. FLUDEX [Concomitant]
     Dates: end: 20080926
  11. AVANDIA [Concomitant]
  12. INIPOMP [Concomitant]
  13. FOSAMAX [Concomitant]
  14. NOVONORM [Concomitant]
  15. ECONAZOLE NITRATE [Concomitant]
  16. POVIDONE IODINE [Concomitant]

REACTIONS (1)
  - INTERNATIONAL NORMALISED RATIO INCREASED [None]
